FAERS Safety Report 21593246 (Version 7)
Quarter: 2023Q1

REPORT INFORMATION
  Report Type: Report from Study
  Country: US (occurrence: US)
  Receive Date: 20221114
  Receipt Date: 20230215
  Transmission Date: 20230418
  Serious: Yes (Hospitalization, Other)
  Sender: FDA-Public Use
  Company Number: US-ABBVIE-4199156

PATIENT
  Age: 55 Year
  Sex: Male

DRUGS (5)
  1. IMBRUVICA [Suspect]
     Active Substance: IBRUTINIB
     Indication: B-cell lymphoma
     Route: 048
     Dates: start: 202209, end: 20221026
  2. IMBRUVICA [Suspect]
     Active Substance: IBRUTINIB
     Indication: B-cell lymphoma
     Route: 048
     Dates: start: 20220824
  3. IMBRUVICA [Suspect]
     Active Substance: IBRUTINIB
     Indication: B-cell lymphoma
     Dosage: DRUG START : 2022
     Route: 048
     Dates: end: 20221107
  4. IMBRUVICA [Suspect]
     Active Substance: IBRUTINIB
     Indication: B-cell lymphoma
     Route: 048
     Dates: start: 20220801, end: 20220823
  5. IMBRUVICA [Suspect]
     Active Substance: IBRUTINIB
     Indication: B-cell lymphoma
     Dosage: 2022 SHOULLD BE THE START DATE.
     Route: 048
     Dates: end: 20230126

REACTIONS (18)
  - Cervical spinal stenosis [Unknown]
  - Musculoskeletal disorder [Unknown]
  - Burning sensation [Recovered/Resolved]
  - Lymphoma [Unknown]
  - Waldenstrom^s macroglobulinaemia [Unknown]
  - Spinal operation [Recovered/Resolved]
  - Neuropathy peripheral [Recovering/Resolving]
  - Dysphagia [Unknown]
  - Arthralgia [Unknown]
  - Bladder disorder [Unknown]
  - Stenosis [Unknown]
  - Burning sensation [Unknown]
  - Diabetes mellitus [Unknown]
  - Gait disturbance [Unknown]
  - Gastrointestinal disorder [Unknown]
  - Cataract [Unknown]
  - Fall [Not Recovered/Not Resolved]
  - Muscle spasms [Unknown]

NARRATIVE: CASE EVENT DATE: 20221028
